FAERS Safety Report 15129648 (Version 6)
Quarter: 2019Q1

REPORT INFORMATION
  Report Type: Spontaneous
  Country: US (occurrence: US)
  Receive Date: 20180711
  Receipt Date: 20190116
  Transmission Date: 20190417
  Serious: No
  Sender: FDA-Public Use
  Company Number: US-VERTEX PHARMACEUTICALS-2018-004750

PATIENT
  Sex: Male
  Weight: 37 kg

DRUGS (19)
  1. ARIPRAZOLE [Concomitant]
     Active Substance: ARIPIPRAZOLE
  2. CEFDINIR. [Concomitant]
     Active Substance: CEFDINIR
  3. ORKAMBI [Suspect]
     Active Substance: IVACAFTOR\LUMACAFTOR
     Indication: CYSTIC FIBROSIS
     Dosage: 2 TABS (100/125MG EACH) BID
     Route: 048
     Dates: start: 20170805
  4. ORKAMBI [Suspect]
     Active Substance: IVACAFTOR\LUMACAFTOR
     Dosage: 2 TAB (200/125 MG EACH), BID
     Route: 048
     Dates: start: 20180801
  5. CYPROHEPTADINE. [Concomitant]
     Active Substance: CYPROHEPTADINE
  6. FLOVENT HFA [Concomitant]
     Active Substance: FLUTICASONE PROPIONATE
  7. FLUTICASONE. [Concomitant]
     Active Substance: FLUTICASONE
  8. VITAMIN D                          /00107901/ [Concomitant]
     Active Substance: ERGOCALCIFEROL
  9. MEPHYTON [Concomitant]
     Active Substance: PHYTONADIONE
  10. ED A HIST [Concomitant]
  11. ADDERALL [Concomitant]
     Active Substance: AMPHETAMINE ASPARTATE\AMPHETAMINE SULFATE\DEXTROAMPHETAMINE SACCHARATE\DEXTROAMPHETAMINE SULFATE
  12. CREON [Concomitant]
     Active Substance: PANCRELIPASE AMYLASE\PANCRELIPASE LIPASE\PANCRELIPASE PROTEASE
  13. POLYETHYLENE GLYCOL [Concomitant]
     Active Substance: POLYETHYLENE GLYCOLS
  14. DESMOPRESSIN [Concomitant]
     Active Substance: DESMOPRESSIN
  15. PULMOZYME [Concomitant]
     Active Substance: DORNASE ALFA
  16. CETRIZINE [Concomitant]
     Active Substance: CETIRIZINE HYDROCHLORIDE
  17. LANSOPRAZOLE. [Concomitant]
     Active Substance: LANSOPRAZOLE
  18. MONTELUKAST [Concomitant]
     Active Substance: MONTELUKAST SODIUM
  19. NASACORT [Concomitant]
     Active Substance: TRIAMCINOLONE ACETONIDE

REACTIONS (3)
  - Pyrexia [Recovered/Resolved]
  - Rhinorrhoea [Recovered/Resolved]
  - Enuresis [Unknown]

NARRATIVE: CASE EVENT DATE: 2018
